FAERS Safety Report 4914410-7 (Version None)
Quarter: 2006Q1

REPORT INFORMATION
  Report Type: 
  Country: None (occurrence: None)
  Receive Date: 20060113
  Receipt Date: 20051006
  Transmission Date: 20060701
  Serious: No
  Sender: FDA-Public Use
  Company Number: 2005SP001913

PATIENT
  Age: 37 Year
  Sex: Female
  Weight: 113.3993 kg

DRUGS (1)
  1. LUNESTA [Suspect]
     Indication: INSOMNIA
     Dosage: 3 MG;HS;ORAL
     Route: 048
     Dates: start: 20050509, end: 20050509

REACTIONS (3)
  - DRUG INEFFECTIVE [None]
  - MIDDLE INSOMNIA [None]
  - MUSCLE SPASMS [None]
